FAERS Safety Report 4283034-X (Version None)
Quarter: 2004Q1

REPORT INFORMATION
  Report Type: 
  Country: None (occurrence: None)
  Receive Date: 20040129
  Receipt Date: 20040116
  Transmission Date: 20041129
  Serious: Yes (Death)
  Sender: FDA-Public Use
  Company Number: US-JNJFOC-20040103200

PATIENT
  Age: 68 Year
  Sex: Female

DRUGS (1)
  1. INFLIXIMAB (INFLIXIMAB, RECOMBINANT)LYOPHILIZED POWDER [Suspect]
     Indication: RHEUMATOID ARTHRITIS
     Dosage: INTRAVENOUS
     Route: 042
     Dates: start: 19991124, end: 20010901

REACTIONS (1)
  - DEATH [None]
